FAERS Safety Report 25031748 (Version 1)
Quarter: 2025Q1

REPORT INFORMATION
  Report Type: Spontaneous
  Country: US (occurrence: None)
  Receive Date: 20250301
  Receipt Date: 20250301
  Transmission Date: 20250409
  Serious: Yes (Hospitalization)
  Sender: FDA-CTU
  Company Number: None

PATIENT
  Age: 75 Year
  Sex: Male
  Weight: 69.7 kg

DRUGS (2)
  1. CARBOPLATIN [Suspect]
     Active Substance: CARBOPLATIN
  2. TAXOL [Suspect]
     Active Substance: PACLITAXEL

REACTIONS (9)
  - Contusion [None]
  - Pneumothorax [None]
  - Hyperaemia [None]
  - Pneumonia necrotising [None]
  - Diarrhoea [None]
  - Chronic obstructive pulmonary disease [None]
  - Chronic respiratory failure [None]
  - Sputum culture positive [None]
  - Aspergillus infection [None]

NARRATIVE: CASE EVENT DATE: 20250212
